FAERS Safety Report 14416887 (Version 3)
Quarter: 2018Q3

REPORT INFORMATION
  Report Type: Spontaneous
  Country: US (occurrence: US)
  Receive Date: 20180122
  Receipt Date: 20180919
  Transmission Date: 20181010
  Serious: Yes (Hospitalization, Other)
  Sender: FDA-Public Use
  Company Number: US-PFIZER INC-2016494561

PATIENT
  Age: 82 Year
  Sex: Female
  Weight: 73.94 kg

DRUGS (21)
  1. ANUSOL?HC [Concomitant]
     Dosage: 25 MG, AS NEEDED (1 SUPP(S) RECTALLY 2 TIMES A DAY)
     Route: 054
     Dates: start: 20160510
  2. VOLTAREN [Concomitant]
     Active Substance: DICLOFENAC SODIUM
     Dosage: 2 G, AS NEEDED (4 TIMES A DAY)
     Route: 061
  3. LOPID [Concomitant]
     Active Substance: GEMFIBROZIL
     Dosage: 600 MG, 2X/DAY
     Route: 048
     Dates: start: 20161115
  4. LOSARTAN. [Concomitant]
     Active Substance: LOSARTAN
     Indication: HYPERTENSION
     Dosage: 25 MG, 1X/DAY
     Route: 048
  5. LEVOTHYROXINE. [Concomitant]
     Active Substance: LEVOTHYROXINE
     Dosage: 25 UG, 1X/DAY
     Route: 048
  6. TRICOR [Concomitant]
     Active Substance: FENOFIBRATE
     Dosage: 145 MG, 1X/DAY
     Route: 048
  7. MELOXICAM. [Concomitant]
     Active Substance: MELOXICAM
     Dosage: 7.5 MG, 1X/DAY
     Route: 048
  8. ZOSTAVAX [Concomitant]
     Active Substance: VARICELLA-ZOSTER VIRUS STRAIN OKA/MERCK LIVE ANTIGEN
     Dosage: 1 ML, SINGLE
     Route: 058
     Dates: start: 20160609
  9. PROCTOSOL?HC [Concomitant]
     Active Substance: HYDROCORTISONE
     Dosage: 2.5 %, AS NEEDED (1 APP APPLIED TOPICALLY TID)
     Route: 061
     Dates: start: 20160215
  10. METOPROLOL SUCCINATE. [Concomitant]
     Active Substance: METOPROLOL SUCCINATE
     Indication: HYPERTENSION
     Dosage: 25 MG, 1X/DAY
     Route: 048
     Dates: start: 201801
  11. LYRICA [Suspect]
     Active Substance: PREGABALIN
     Indication: NERVE INJURY
     Dosage: 50 MG, 1X/DAY (QHS 90DAYS)
     Route: 048
  12. FLUTICASONE. [Concomitant]
     Active Substance: FLUTICASONE
     Dosage: UNK, 1X/DAY (2 SPRAY(S) INTRA NASALLY)
     Route: 045
  13. AMIODARONE HCL [Concomitant]
     Active Substance: AMIODARONE HYDROCHLORIDE
     Indication: HEART RATE
     Dosage: 100 MG, 1X/DAY
     Route: 048
     Dates: start: 201801
  14. LYRICA [Suspect]
     Active Substance: PREGABALIN
     Indication: NEUROPATHY PERIPHERAL
     Dosage: 50 MG, 1X/DAY (AT NIGHTLY)
     Route: 048
  15. LYRICA [Suspect]
     Active Substance: PREGABALIN
     Indication: MONONEUROPATHY
     Dosage: 50 MG, UNK (CAPSULE AT NIGHT)
     Route: 048
  16. LYRICA [Suspect]
     Active Substance: PREGABALIN
     Dosage: 100 MG, UNK
  17. FLUCONAZOLE. [Concomitant]
     Active Substance: FLUCONAZOLE
     Dosage: 150 MG, WEEKLY
     Route: 048
     Dates: start: 20160921
  18. LYRICA [Suspect]
     Active Substance: PREGABALIN
     Dosage: 50 MG, 1X/DAY
     Dates: start: 2014
  19. PNEUMOVAX 23 [Concomitant]
     Active Substance: PNEUMOCOCCAL VACCINE, POLYVALENT 23
     Dosage: 1 ML, SINGLE
     Route: 030
     Dates: start: 20160609
  20. BIOFLEXOR [Concomitant]
     Active Substance: MENTHOL
     Dosage: UNK (AS DIRECTED TOPICALLY AS DIRECTED)
     Route: 061
     Dates: start: 20150127
  21. GEMFIBROZIL. [Concomitant]
     Active Substance: GEMFIBROZIL
     Indication: BLOOD CHOLESTEROL
     Dosage: 300 MG, 1X/DAY
     Route: 048

REACTIONS (11)
  - Vomiting [Recovering/Resolving]
  - Expired product administered [Unknown]
  - Arrhythmia [Unknown]
  - Nausea [Unknown]
  - Herpes zoster [Not Recovered/Not Resolved]
  - Weight decreased [Unknown]
  - Dehydration [Unknown]
  - Malaise [Recovering/Resolving]
  - Cough [Unknown]
  - Bronchitis [Unknown]
  - Dizziness [Unknown]

NARRATIVE: CASE EVENT DATE: 201801
